FAERS Safety Report 24588176 (Version 1)
Quarter: 2024Q4

REPORT INFORMATION
  Report Type: Spontaneous
  Country: US (occurrence: None)
  Receive Date: 20241106
  Receipt Date: 20241106
  Transmission Date: 20250114
  Serious: Yes (Hospitalization)
  Sender: Public
  Company Number: None

PATIENT
  Age: 18 Year
  Sex: Male

DRUGS (1)
  1. FULPHILA [Suspect]
     Active Substance: PEGFILGRASTIM-JMDB
     Indication: Neutropenia
     Dosage: 6MG  EVERY 21 DAYS UNDER THE SKIN?
     Route: 058
     Dates: start: 20241009

REACTIONS (4)
  - Nausea [None]
  - Eating disorder [None]
  - Fluid intake reduced [None]
  - Dehydration [None]

NARRATIVE: CASE EVENT DATE: 20241101
